FAERS Safety Report 23431961 (Version 1)
Quarter: 2024Q1

REPORT INFORMATION
  Report Type: Spontaneous
  Country: IT (occurrence: IT)
  Receive Date: 20240123
  Receipt Date: 20240123
  Transmission Date: 20240410
  Serious: Yes (Other)
  Sender: FDA-Public Use
  Company Number: None

PATIENT
  Age: 76 Year
  Sex: Male

DRUGS (2)
  1. OXALIPLATIN [Suspect]
     Active Substance: OXALIPLATIN
     Indication: Gastric cancer
     Dosage: 160 MG, Q3W (THERAPY START 11/2022 - THERAPY EVERY 21 DAYS - II CYCLE.)
     Route: 042
     Dates: start: 20221213, end: 20221213
  2. CAPECITABINE [Suspect]
     Active Substance: CAPECITABINE
     Indication: Gastric cancer
     Dosage: 2000 MG, QD (THERAPY START 11/2022 - THERAPY EVERY 21 DAYS, DAY 1 - 14- II CYCLE.)
     Route: 048
     Dates: start: 20221214, end: 20221228

REACTIONS (5)
  - Azotaemia [Recovering/Resolving]
  - Nausea [Recovered/Resolved]
  - Haemoglobin decreased [Recovering/Resolving]
  - Constipation [Recovered/Resolved]
  - Off label use [Unknown]

NARRATIVE: CASE EVENT DATE: 20221213
